FAERS Safety Report 9858907 (Version 3)
Quarter: 2014Q3

REPORT INFORMATION
  Report Type: Spontaneous
  Country: US (occurrence: US)
  Receive Date: 20140131
  Receipt Date: 20140917
  Transmission Date: 20150326
  Serious: Yes (Hospitalization)
  Sender: FDA-Public Use
  Company Number: US-009507513-1401USA013574

PATIENT
  Sex: Female
  Weight: 70.48 kg

DRUGS (1)
  1. NUVARING [Suspect]
     Active Substance: ETHINYL ESTRADIOL\ETONOGESTREL
     Indication: CONTRACEPTION
     Dosage: UNK
     Route: 067
     Dates: end: 200510

REACTIONS (6)
  - Menorrhagia [Unknown]
  - Thrombophlebitis superficial [Recovering/Resolving]
  - Bronchitis [Recovering/Resolving]
  - Weight increased [Unknown]
  - Diabetes mellitus [Unknown]
  - Deep vein thrombosis [Unknown]

NARRATIVE: CASE EVENT DATE: 200512
